FAERS Safety Report 17471553 (Version 1)
Quarter: 2020Q1

REPORT INFORMATION
  Report Type: Spontaneous
  Country: US (occurrence: US)
  Receive Date: 20200228
  Receipt Date: 20200228
  Transmission Date: 20200409
  Serious: Yes (Hospitalization)
  Sender: FDA-Public Use
  Company Number: US-TEVA-2020-US-1191845

PATIENT
  Sex: Male
  Weight: 90.72 kg

DRUGS (6)
  1. SPIRIVA [Concomitant]
     Active Substance: TIOTROPIUM BROMIDE MONOHYDRATE
     Indication: EMPHYSEMA
     Route: 065
  2. PROZAC [Suspect]
     Active Substance: FLUOXETINE HYDROCHLORIDE
     Route: 065
  3. FOSINOPRIL [Concomitant]
     Active Substance: FOSINOPRIL
     Indication: BLOOD PRESSURE MEASUREMENT
     Dosage: 400 MILLIGRAM DAILY;
     Route: 065
  4. PROAIR HFA [Concomitant]
     Active Substance: ALBUTEROL SULFATE
     Indication: EMPHYSEMA
     Route: 065
  5. IMIPRAMINE [Suspect]
     Active Substance: IMIPRAMINE
     Route: 065
  6. DESIPRAMINE [Suspect]
     Active Substance: DESIPRAMINE
     Route: 065

REACTIONS (2)
  - Drug ineffective [Unknown]
  - Depression [Unknown]
